FAERS Safety Report 4968779-8 (Version None)
Quarter: 2006Q2

REPORT INFORMATION
  Report Type: 
  Country: None (occurrence: None)
  Receive Date: 20060411
  Receipt Date: 20060331
  Transmission Date: 20061013
  Serious: Yes (Other)
  Sender: FDA-Public Use
  Company Number: 2006GB00547

PATIENT
  Age: 62 Year
  Sex: Female

DRUGS (4)
  1. OMEPRAZOLE [Suspect]
     Indication: DYSPEPSIA
     Route: 048
     Dates: start: 20060201, end: 20060311
  2. LAMOTRIGINE [Concomitant]
     Indication: EPILEPSY
     Route: 065
     Dates: start: 20020822
  3. OTOMIZE [Concomitant]
     Indication: OTITIS EXTERNA
     Route: 001
     Dates: start: 20060109
  4. ALENDRONIC ACID [Concomitant]
     Indication: OSTEOPOROSIS
     Route: 048
     Dates: start: 20030206

REACTIONS (1)
  - CONVULSION [None]
